FAERS Safety Report 8540361-5 (Version None)
Quarter: 2012Q3

REPORT INFORMATION
  Report Type: 
  Country: None (occurrence: None)
  Receive Date: 20120726
  Receipt Date: 20110809
  Transmission Date: 20120928
  Serious: No
  Sender: FDA-Public Use
  Company Number: US-ASTRAZENECA-2010SE28401

PATIENT
  Age: 49 Year
  Sex: Male

DRUGS (10)
  1. SEROQUEL [Suspect]
     Route: 048
  2. KLONOPIN [Concomitant]
  3. SEROQUEL [Suspect]
     Dosage: HIGHER DOSE OF UNKNOWN STRENGTH
     Route: 048
     Dates: start: 20050101
  4. ASPIRIN [Concomitant]
  5. ATIVAN [Concomitant]
  6. SEROQUEL [Suspect]
     Indication: BIPOLAR DISORDER
     Route: 048
     Dates: start: 20030501, end: 20030601
  7. SEROQUEL [Suspect]
     Route: 048
     Dates: start: 20100101
  8. LISINOPRIL [Concomitant]
  9. WELLBUTRIN [Concomitant]
  10. AMBIEN [Concomitant]

REACTIONS (4)
  - FEELING ABNORMAL [None]
  - SOMNOLENCE [None]
  - FATIGUE [None]
  - WRONG TECHNIQUE IN DRUG USAGE PROCESS [None]
